FAERS Safety Report 8426266-9 (Version None)
Quarter: 2012Q2

REPORT INFORMATION
  Report Type: 
  Country: None (occurrence: None)
  Receive Date: 20120611
  Receipt Date: 20120606
  Transmission Date: 20120825
  Serious: Yes (Death)
  Sender: FDA-Public Use
  Company Number: MX-SANOFI-AVENTIS-2012SA039370

PATIENT
  Age: 56 Year
  Sex: Female
  Weight: 68 kg

DRUGS (4)
  1. DOCETAXEL [Suspect]
     Route: 042
     Dates: start: 20111021
  2. TRASTUZUMAB [Suspect]
     Dosage: LAST DOSE TAKEN: 408 MG, LAST DOSE PRIOR TO EVENT: 8 MAY 2012
     Route: 042
     Dates: start: 20120508
  3. DOCETAXEL [Suspect]
     Dosage: LAST DOSE TAKEN: 120 MG, LAST DOSE PRIOR TO EVENT: 8 MAY 2012
     Route: 042
     Dates: start: 20120508
  4. TRASTUZUMAB [Suspect]
     Route: 042
     Dates: start: 20111021

REACTIONS (1)
  - DEATH [None]
